FAERS Safety Report 4442373-X (Version None)
Quarter: 2004Q3

REPORT INFORMATION
  Report Type: 
  Country: None (occurrence: None)
  Receive Date: 20040903
  Receipt Date: 20040720
  Transmission Date: 20050211
  Serious: Yes (Other)
  Sender: FDA-Public Use
  Company Number: 2004UW15069

PATIENT
  Age: 71 Year
  Sex: Female

DRUGS (6)
  1. CRESTOR [Suspect]
     Indication: BLOOD CHOLESTEROL INCREASED
  2. ALLOPURINOL [Concomitant]
  3. LASIX [Concomitant]
  4. LEVOXYL [Concomitant]
  5. NEXIUM [Concomitant]
  6. CELEBREX [Concomitant]

REACTIONS (3)
  - ABDOMINAL DISTENSION [None]
  - CONSTIPATION [None]
  - MYALGIA [None]
